FAERS Safety Report 17499546 (Version 1)
Quarter: 2020Q1

REPORT INFORMATION
  Report Type: Spontaneous
  Country: SE (occurrence: SE)
  Receive Date: 20200305
  Receipt Date: 20200305
  Transmission Date: 20200409
  Serious: Yes (Other)
  Sender: FDA-Public Use
  Company Number: SE-TEVA-2020-SE-1193886

PATIENT
  Age: 76 Year
  Sex: Female

DRUGS (6)
  1. METOPROLOL. [Concomitant]
     Active Substance: METOPROLOL
  2. ENALAPRIL [Suspect]
     Active Substance: ENALAPRIL
     Dosage: ^5 MG 2 X 1^
     Dates: start: 20190201, end: 20190223
  3. ENALAPRIL [Suspect]
     Active Substance: ENALAPRIL
     Dosage: ^5 MG 2 X 1^
     Dates: start: 20190225
  4. BRILIQUE [Concomitant]
     Active Substance: TICAGRELOR
  5. ENALAPRIL [Suspect]
     Active Substance: ENALAPRIL
     Indication: HYPERTENSION
     Dosage: 15 MG
     Dates: start: 20190224, end: 20190224
  6. ACETYLSALICYLSYRA [Concomitant]
     Active Substance: ASPIRIN

REACTIONS (5)
  - Fatigue [Recovered/Resolved]
  - Malaise [Recovered/Resolved]
  - Swelling face [Recovered/Resolved]
  - Diarrhoea [Recovered/Resolved]
  - Dyspnoea [Recovered/Resolved]

NARRATIVE: CASE EVENT DATE: 201902
